FAERS Safety Report 6827665-9 (Version None)
Quarter: 2010Q3

REPORT INFORMATION
  Report Type: 
  Country: None (occurrence: None)
  Receive Date: 20100709
  Receipt Date: 20070123
  Transmission Date: 20110219
  Serious: No
  Sender: FDA-Public Use
  Company Number: US-PFIZER INC-2007008003

PATIENT
  Sex: Male
  Weight: 102.06 kg

DRUGS (1)
  1. CHANTIX [Suspect]
     Indication: SMOKING CESSATION THERAPY
     Dates: start: 20070101

REACTIONS (10)
  - ARTHRALGIA [None]
  - ASTHENIA [None]
  - CHILLS [None]
  - DECREASED APPETITE [None]
  - DRY MOUTH [None]
  - HEART RATE INCREASED [None]
  - INFLUENZA [None]
  - MALAISE [None]
  - NAUSEA [None]
  - PAIN [None]
